FAERS Safety Report 5188266-4 (Version None)
Quarter: 2006Q4

REPORT INFORMATION
  Report Type: 
  Country: None (occurrence: None)
  Receive Date: 20061221
  Receipt Date: 20061124
  Transmission Date: 20070319
  Serious: Yes (Hospitalization)
  Sender: FDA-Public Use
  Company Number: FR-GLAXOSMITHKLINE-B0448708A

PATIENT
  Age: 49 Year
  Sex: Male
  Weight: 74 kg

DRUGS (1)
  1. ALKERAN [Suspect]
     Indication: MULTIPLE MYELOMA
     Dosage: 256MG PER DAY
     Route: 042
     Dates: start: 19960713, end: 19960713

REACTIONS (5)
  - BLOOD BILIRUBIN INCREASED [None]
  - COOMBS TEST NEGATIVE [None]
  - HAEMOLYTIC ANAEMIA [None]
  - HAPTOGLOBIN DECREASED [None]
  - INTRAVASCULAR HAEMOLYSIS [None]
